FAERS Safety Report 6252013-5 (Version None)
Quarter: 2009Q2

REPORT INFORMATION
  Report Type: 
  Country: None (occurrence: None)
  Receive Date: 20090630
  Receipt Date: 20050205
  Transmission Date: 20091009
  Serious: Yes (Hospitalization)
  Sender: FDA-Public Use
  Company Number: US-ROCHE-638463

PATIENT
  Sex: Male

DRUGS (4)
  1. ENFUVIRTIDE [Suspect]
     Route: 065
     Dates: start: 20050104, end: 20050204
  2. LEXIVA [Concomitant]
     Dates: start: 20050104, end: 20050204
  3. NORVIR [Concomitant]
     Dates: start: 20050104, end: 20050204
  4. REYATAZ [Concomitant]
     Dates: start: 20050104, end: 20050204

REACTIONS (3)
  - ACQUIRED IMMUNODEFICIENCY SYNDROME [None]
  - PANCREATIC MASS [None]
  - PANCREATITIS [None]
